FAERS Safety Report 23711094 (Version 1)
Quarter: 2024Q2

REPORT INFORMATION
  Report Type: Spontaneous
  Country: BE (occurrence: BE)
  Receive Date: 20240405
  Receipt Date: 20240405
  Transmission Date: 20240716
  Serious: Yes (Other)
  Sender: FDA-Public Use
  Company Number: BE-CELLTRION INC.-2024BE008033

PATIENT

DRUGS (1)
  1. INFLIXIMAB [Suspect]
     Active Substance: INFLIXIMAB
     Indication: Spondylitis
     Dosage: 5 MG/KG/8 WK

REACTIONS (2)
  - Organising pneumonia [Unknown]
  - Pyoderma gangrenosum [Unknown]
